FAERS Safety Report 4368800-4 (Version None)
Quarter: 2004Q2

REPORT INFORMATION
  Report Type: 
  Country: None (occurrence: None)
  Receive Date: 20040527
  Receipt Date: 20040510
  Transmission Date: 20050107
  Serious: Yes (Other)
  Sender: FDA-Public Use
  Company Number: USA040155823

PATIENT
  Age: 11 Year
  Sex: Male
  Weight: 32 kg

DRUGS (6)
  1. STRATTERA [Suspect]
     Indication: ATTENTION DEFICIT/HYPERACTIVITY DISORDER
     Dosage: 25 MG/1 DAY
     Dates: start: 20031116, end: 20040105
  2. ADDERALL 10 [Concomitant]
  3. DEPAKOTE [Concomitant]
  4. FLUOXETINE [Concomitant]
  5. CONCERTA [Concomitant]
  6. CLONIDINE HCL [Concomitant]

REACTIONS (4)
  - CHEST PAIN [None]
  - HEART RATE INCREASED [None]
  - QRS AXIS ABNORMAL [None]
  - VENTRICULAR HYPERTROPHY [None]
